FAERS Safety Report 5073065-4 (Version None)
Quarter: 2006Q3

REPORT INFORMATION
  Report Type: 
  Country: None (occurrence: None)
  Receive Date: 20060802
  Receipt Date: 20060712
  Transmission Date: 20061208
  Serious: Yes (Other)
  Sender: FDA-Public Use
  Company Number: US200607001906

PATIENT
  Age: 38 Year
  Sex: Female
  Weight: 81.6 kg

DRUGS (3)
  1. CYMBALTA [Suspect]
     Indication: NEURALGIA
     Dosage: 60 MG, DAILY (1/D), ORAL
     Route: 048
     Dates: start: 20050127, end: 20051226
  2. WELLBUTRIN SR [Concomitant]
  3. DARVOCET-N (PROPOXYPHENE NAPSYLATE UNKNOWN FORMULATION) [Concomitant]

REACTIONS (1)
  - METRORRHAGIA [None]
